FAERS Safety Report 15411341 (Version 1)
Quarter: 2018Q3

REPORT INFORMATION
  Report Type: Spontaneous
  Country: US (occurrence: US)
  Receive Date: 20180920
  Receipt Date: 20180920
  Transmission Date: 20181010
  Serious: Yes (Other)
  Sender: FDA-Public Use
  Company Number: None

PATIENT
  Age: 19 Year
  Sex: Female
  Weight: 60.75 kg

DRUGS (3)
  1. DULOXETINE. [Concomitant]
     Active Substance: DULOXETINE
  2. NEXPLANON [Concomitant]
     Active Substance: ETONOGESTREL
  3. TESTOSTERONE CYPIONATE 200 MG/DL [Suspect]
     Active Substance: TESTOSTERONE CYPIONATE
     Indication: GENDER DYSPHORIA
     Dosage: ?          QUANTITY:1 INJECTION(S);OTHER FREQUENCY:EVERY 2 WEEKS;?
     Route: 030
     Dates: start: 20171120

REACTIONS (3)
  - Hirsutism [None]
  - Acne [None]
  - Dysphonia [None]

NARRATIVE: CASE EVENT DATE: 20171120
